FAERS Safety Report 9842393 (Version 1)
Quarter: 2013Q4

REPORT INFORMATION
  Report Type: Spontaneous
  Country: US (occurrence: None)
  Receive Date: 20131219
  Receipt Date: 20131219
  Transmission Date: 20140711
  Serious: Yes (Death)
  Sender: FDA-Public Use
  Company Number: 163-20785-13014523

PATIENT
  Age: 69 Year
  Sex: Female

DRUGS (9)
  1. THALOMID (THALIDOMIDE) (CAPSULES) [Suspect]
     Indication: PLASMA CELL MYELOMA
     Dosage: 50 MG , 28 IN 28 D, PO
     Dates: start: 20120518
  2. ACYCLOVIR (ACICLOVIR) (ACICLOVIR) [Concomitant]
  3. ALKERAN (MELPHALAN) [Concomitant]
  4. AMILORIDE HCL (AMILORIDE HYDROCHLORIDE) [Concomitant]
  5. BENICAR (OLMESARTAN MEDOXOMIL) [Concomitant]
  6. BUSPIRONE HCL (BUSPIRONE HYDROCHLORIDE) [Concomitant]
  7. CARAFATE (SUCRALFATE) TABLET, 1G [Concomitant]
  8. DEXAMETHASONE (DEXAMETHASONE) [Concomitant]
  9. FENTANYL (FENTANYL) [Concomitant]

REACTIONS (1)
  - Death [None]
